FAERS Safety Report 7951885-3 (Version None)
Quarter: 2011Q4

REPORT INFORMATION
  Report Type: 
  Country: None (occurrence: None)
  Receive Date: 20111201
  Receipt Date: 20111201
  Transmission Date: 20120403
  Serious: No
  Sender: FDA-Public Use
  Company Number: None

PATIENT
  Age: 66 Year
  Sex: Female
  Weight: 49.895 kg

DRUGS (5)
  1. MORPHINE [Concomitant]
  2. BENICAR [Concomitant]
  3. PROPANTHELINE BROMIDE [Concomitant]
  4. OMNISCAN [Suspect]
     Indication: NUCLEAR MAGNETIC RESONANCE IMAGING
     Route: 042
     Dates: start: 20091129, end: 20091129
  5. DURAGESIC-100 [Concomitant]

REACTIONS (6)
  - JOINT STIFFNESS [None]
  - PARALYSIS [None]
  - BURNING SENSATION [None]
  - MUSCULOSKELETAL DISORDER [None]
  - JOINT LOCK [None]
  - BLOOD PRESSURE ABNORMAL [None]
